FAERS Safety Report 25342073 (Version 1)
Quarter: 2025Q2

REPORT INFORMATION
  Report Type: Spontaneous
  Country: US (occurrence: None)
  Receive Date: 20250519
  Receipt Date: 20250519
  Transmission Date: 20250716
  Serious: No
  Sender: FDA-CTU
  Company Number: None

PATIENT
  Sex: Female

DRUGS (1)
  1. NURTEC ODT [Suspect]
     Active Substance: RIMEGEPANT SULFATE
     Dates: start: 20250511, end: 20250519

REACTIONS (3)
  - Hypoaesthesia oral [None]
  - Paraesthesia oral [None]
  - Swelling [None]

NARRATIVE: CASE EVENT DATE: 20250517
